FAERS Safety Report 7549283-X (Version None)
Quarter: 2011Q2

REPORT INFORMATION
  Report Type: 
  Country: None (occurrence: None)
  Receive Date: 20110615
  Receipt Date: 20110608
  Transmission Date: 20111010
  Serious: Yes (Other)
  Sender: FDA-Public Use
  Company Number: US-ABBOTT-11P-163-0731302-00

PATIENT
  Sex: Female
  Weight: 83.536 kg

DRUGS (23)
  1. IBUPROFEN [Concomitant]
     Indication: PAIN
  2. NASACORT [Concomitant]
     Indication: HYPERSENSITIVITY
     Dosage: NASAL SPRAY
  3. PRILOSEC [Concomitant]
     Indication: DYSPEPSIA
  4. NIASPAN [Concomitant]
     Indication: HIGH DENSITY LIPOPROTEIN DECREASED
  5. MSM [Concomitant]
     Indication: ARTHRITIS
  6. VITAMIN D [Concomitant]
     Indication: VITAMIN SUPPLEMENTATION
  7. POTASSIUM CHLORIDE [Concomitant]
     Indication: MINERAL SUPPLEMENTATION
  8. IBUPROFEN [Concomitant]
     Indication: SCOLIOSIS
  9. ASTELIN [Concomitant]
     Indication: HYPERSENSITIVITY
  10. VASERETIC [Concomitant]
     Indication: DIURETIC THERAPY
  11. MULTI-VITAMIN [Concomitant]
     Indication: VITAMIN SUPPLEMENTATION
  12. SYNTHROID [Suspect]
     Indication: HYPOTHYROIDISM
     Dates: start: 19950101
  13. IBUPROFEN [Concomitant]
     Indication: ARTHRITIS
  14. CALCIUM CARBONATE [Concomitant]
     Indication: BONE DISORDER
  15. ALBUTEROL SULFATE AUTOHALER [Concomitant]
     Indication: ASTHMA
  16. VERAPAMIL [Concomitant]
     Indication: BLOOD PRESSURE
     Dosage: SR
  17. VERAPAMIL [Concomitant]
     Indication: AFFECTIVE DISORDER
  18. ESTALAPRAM [Concomitant]
     Indication: INSOMNIA
  19. GLUCOSAMINE [Concomitant]
     Indication: ARTHRITIS
  20. QVAR 40 [Concomitant]
     Indication: ASTHMA
  21. SYNTHROID [Suspect]
     Dates: start: 20000101
  22. STEROID INJECTION TO NECK [Suspect]
     Indication: NERVE COMPRESSION
     Dates: start: 20100501, end: 20100501
  23. LIPITOR [Concomitant]
     Indication: BLOOD CHOLESTEROL INCREASED

REACTIONS (21)
  - SINUS DISORDER [None]
  - VISUAL IMPAIRMENT [None]
  - CARDIAC FAILURE [None]
  - FEELING ABNORMAL [None]
  - APPARENT DEATH [None]
  - DYSPNOEA [None]
  - BLOOD THYROID STIMULATING HORMONE INCREASED [None]
  - MYALGIA [None]
  - NECK PAIN [None]
  - NERVE COMPRESSION [None]
  - ROTATOR CUFF SYNDROME [None]
  - PANIC ATTACK [None]
  - PAIN IN EXTREMITY [None]
  - JOINT SWELLING [None]
  - HEART RATE DECREASED [None]
  - ABNORMAL DREAMS [None]
  - SUPRAVENTRICULAR TACHYCARDIA [None]
  - OEDEMA PERIPHERAL [None]
  - NODULE [None]
  - FALL [None]
  - GAIT DISTURBANCE [None]
